FAERS Safety Report 7981640-X (Version None)
Quarter: 2011Q4

REPORT INFORMATION
  Report Type: 
  Country: None (occurrence: None)
  Receive Date: 20111215
  Receipt Date: 20111206
  Transmission Date: 20120403
  Serious: Yes (Other)
  Sender: FDA-Public Use
  Company Number: BR-BRISTOL-MYERS SQUIBB COMPANY-16282279

PATIENT
  Sex: Male

DRUGS (1)
  1. METFFORMIN HYDROCHLORIDE [Suspect]

REACTIONS (1)
  - INTESTINAL OBSTRUCTION [None]
